FAERS Safety Report 8274949-6 (Version None)
Quarter: 2012Q1

REPORT INFORMATION
  Report Type: 
  Country: None (occurrence: None)
  Receive Date: 20120309
  Receipt Date: 20110707
  Transmission Date: 20120608
  Serious: Yes (Other)
  Sender: FDA-Public Use
  Company Number: TH-2011-00220

PATIENT
  Sex: Female
  Weight: 91 kg

DRUGS (16)
  1. PROZAC [Concomitant]
  2. COZAAR [Concomitant]
  3. EGRIFTA [Suspect]
     Indication: LENTIVIRUS TEST POSITIVE
     Dosage: 1 IN 1 D
     Dates: start: 20110301, end: 20110501
  4. EGRIFTA [Suspect]
     Indication: LIPODYSTROPHY ACQUIRED
     Dosage: 1 IN 1 D
     Dates: start: 20110301, end: 20110501
  5. CLONIDINE [Concomitant]
  6. CRESTOR [Concomitant]
  7. VITAMIN D [Concomitant]
  8. PLAVIX [Concomitant]
  9. NEXIUM [Concomitant]
  10. SUSTIVA [Concomitant]
  11. EPZICOM (LAMIVUDINE, ABACAVIR SULFATE) [Concomitant]
  12. METOPROLOL TARTRATE [Concomitant]
  13. TRAMADOL HCL [Concomitant]
  14. NEURONTIN [Concomitant]
  15. ISOSORBIDE (ISOSORBIDE) [Concomitant]
  16. ESTROGEN HORMONE (ESTRADIOL) [Concomitant]

REACTIONS (2)
  - BREAST CANCER [None]
  - WEIGHT DECREASED [None]
